FAERS Safety Report 7001958-7 (Version None)
Quarter: 2010Q3

REPORT INFORMATION
  Report Type: 
  Country: None (occurrence: None)
  Receive Date: 20100920
  Receipt Date: 20100913
  Transmission Date: 20110219
  Serious: Yes (Death, Hospitalization)
  Sender: FDA-Public Use
  Company Number: A0881641A

PATIENT
  Age: 84 Year
  Sex: Female

DRUGS (2)
  1. PROMACTA [Suspect]
  2. CORTICOSTEROIDS [Concomitant]

REACTIONS (2)
  - APHASIA [None]
  - HAEMORRHAGE INTRACRANIAL [None]
